FAERS Safety Report 5181021-0 (Version None)
Quarter: 2006Q4

REPORT INFORMATION
  Report Type: 
  Country: None (occurrence: None)
  Receive Date: 20061212
  Receipt Date: 20061207
  Transmission Date: 20070319
  Serious: No
  Sender: FDA-Public Use
  Company Number: 2006-150875-NL

PATIENT
  Age: 74 Year
  Sex: Female

DRUGS (7)
  1. MIRTAZAPINE [Suspect]
     Indication: DEPRESSION
     Dosage: 30 MG QD ORAL
     Route: 048
     Dates: start: 20060701
  2. LORMETAZEPAM [Concomitant]
  3. ASPIRIN [Concomitant]
  4. AMLODIPINE [Concomitant]
  5. PROPRANOLOL [Concomitant]
  6. OMEPRAZOLE [Concomitant]
  7. CO-DYDRAMOL [Concomitant]

REACTIONS (1)
  - RENAL FAILURE [None]
